FAERS Safety Report 25892260 (Version 1)
Quarter: 2025Q4

REPORT INFORMATION
  Report Type: Spontaneous
  Country: US (occurrence: US)
  Receive Date: 20251007
  Receipt Date: 20251007
  Transmission Date: 20260118
  Serious: Yes (Other)
  Sender: BIOMARIN
  Company Number: US-SA-2025SA287559

PATIENT
  Age: 30 Year
  Sex: Female

DRUGS (1)
  1. LARONIDASE [Suspect]
     Active Substance: LARONIDASE
     Indication: Glycogen storage disease type I
     Dosage: 49.3 (UNITS NOT PROVIDED) TOTAL DOSE ADMINISTERED, QOW

REACTIONS (1)
  - Blindness [Unknown]
